FAERS Safety Report 8363454-4 (Version None)
Quarter: 2012Q2

REPORT INFORMATION
  Report Type: 
  Country: None (occurrence: None)
  Receive Date: 20120516
  Receipt Date: 20120509
  Transmission Date: 20120825
  Serious: Yes (Hospitalization)
  Sender: FDA-Public Use
  Company Number: GB-JNJFOC-20120509102

PATIENT
  Sex: Female
  Weight: 95 kg

DRUGS (5)
  1. PHENERGAN [Concomitant]
     Indication: PRODUCT USED FOR UNKNOWN INDICATION
     Route: 065
     Dates: start: 20080324
  2. ACETAMINOPHEN AND CODEINE PHOSPHATE [Concomitant]
     Indication: PRODUCT USED FOR UNKNOWN INDICATION
     Route: 065
     Dates: start: 20080324
  3. STELARA [Suspect]
     Indication: PSORIASIS
     Route: 058
     Dates: start: 20101213
  4. BENDROFLUAZIDE [Concomitant]
     Indication: PRODUCT USED FOR UNKNOWN INDICATION
     Route: 065
     Dates: start: 20080324
  5. IRBESARTAN [Concomitant]
     Indication: PRODUCT USED FOR UNKNOWN INDICATION
     Route: 065
     Dates: start: 20080324

REACTIONS (5)
  - SPEECH DISORDER [None]
  - DYSPHONIA [None]
  - DYSARTHRIA [None]
  - DYSPHAGIA [None]
  - CHOKING [None]
